FAERS Safety Report 12093854 (Version 2)
Quarter: 2016Q2

REPORT INFORMATION
  Report Type: Spontaneous
  Country: US (occurrence: US)
  Receive Date: 20160219
  Receipt Date: 20160505
  Transmission Date: 20160815
  Serious: Yes (Hospitalization, Other)
  Sender: FDA-Public Use
  Company Number: US-PFIZER INC-2016094788

PATIENT
  Age: 75 Year
  Sex: Female
  Weight: 49.9 kg

DRUGS (2)
  1. VFEND [Suspect]
     Active Substance: VORICONAZOLE
     Indication: ASPERGILLUS INFECTION
     Dosage: 200 MG, 2X/DAY
     Route: 048
     Dates: start: 201412, end: 201601
  2. BACTRIM [Concomitant]
     Active Substance: SULFAMETHOXAZOLE\TRIMETHOPRIM
     Dosage: UNK
     Dates: start: 20160113, end: 20160330

REACTIONS (2)
  - Blood sodium decreased [Recovered/Resolved]
  - Mucormycosis [Recovered/Resolved]

NARRATIVE: CASE EVENT DATE: 20160113
